FAERS Safety Report 24209819 (Version 1)
Quarter: 2024Q3

REPORT INFORMATION
  Report Type: Spontaneous
  Country: IT (occurrence: IT)
  Receive Date: 20240814
  Receipt Date: 20240814
  Transmission Date: 20241016
  Serious: Yes (Other)
  Sender: MYLAN
  Company Number: None

PATIENT
  Age: 12 Year
  Sex: Male
  Weight: 44 kg

DRUGS (2)
  1. ARIPIPRAZOLE [Suspect]
     Active Substance: ARIPIPRAZOLE
     Indication: Aggression
     Dosage: 5 MILLIGRAM, FROM 27-JUL 2.5 MG/DAY (9 AM), INCREASED ON 30-JUL-24 TO 5 MG/DAY (9 AM)
     Route: 048
     Dates: start: 20240727, end: 20240730
  2. PERGIDAL [Concomitant]
     Indication: Constipation
     Dosage: 3.75 GRAM, 4 SACHETS OF 3.75G/DAY, 11.00 AM
     Route: 048
     Dates: start: 20240724

REACTIONS (2)
  - Hypersensitivity [Recovered/Resolved]
  - Off label use [Unknown]

NARRATIVE: CASE EVENT DATE: 20240727
